FAERS Safety Report 8516282-0 (Version None)
Quarter: 2012Q3

REPORT INFORMATION
  Report Type: 
  Country: None (occurrence: None)
  Receive Date: 20120717
  Receipt Date: 20120709
  Transmission Date: 20120928
  Serious: Yes (Other)
  Sender: FDA-Public Use
  Company Number: US-ABBOTT-12P-163-0954415-00

PATIENT
  Age: 52 Year
  Sex: Female

DRUGS (5)
  1. CLOBETASOL PROPIONATE [Concomitant]
     Indication: PRODUCT USED FOR UNKNOWN INDICATION
  2. HUMIRA [Suspect]
     Indication: PSORIASIS
     Dosage: EVERY TWO TO THREE WEEKS
     Dates: start: 20090101, end: 20100101
  3. NEXIUM [Concomitant]
     Indication: GASTROOESOPHAGEAL REFLUX DISEASE
     Dosage: DAILY
  4. CLOBEX [Concomitant]
     Indication: PSORIASIS
     Dosage: FOAM, AS NEEDED
  5. HUMIRA [Suspect]
     Dosage: EVERY FOUR TO SIX WEEKS

REACTIONS (3)
  - ARTHRALGIA [None]
  - NASOPHARYNGITIS [None]
  - OVARIAN CYST [None]
